FAERS Safety Report 16037720 (Version 1)
Quarter: 2019Q1

REPORT INFORMATION
  Report Type: Spontaneous
  Country: BR (occurrence: BR)
  Receive Date: 20190305
  Receipt Date: 20190305
  Transmission Date: 20190418
  Serious: Yes (Hospitalization, Other)
  Sender: FDA-Public Use
  Company Number: BR-ABBVIE-19K-020-2688333-00

PATIENT
  Age: 50 Year
  Sex: Female

DRUGS (6)
  1. VITAMIN D3 [Concomitant]
     Active Substance: CHOLECALCIFEROL
     Indication: PRODUCT USED FOR UNKNOWN INDICATION
  2. XELJANZ [Concomitant]
     Active Substance: TOFACITINIB CITRATE
     Indication: PRODUCT USED FOR UNKNOWN INDICATION
  3. HUMIRA [Suspect]
     Active Substance: ADALIMUMAB
     Indication: RHEUMATOID ARTHRITIS
     Route: 058
  4. RITUXIMAB. [Suspect]
     Active Substance: RITUXIMAB
     Indication: PRODUCT USED FOR UNKNOWN INDICATION
     Route: 065
  5. METHOTREXATE. [Concomitant]
     Active Substance: METHOTREXATE
     Indication: PRODUCT USED FOR UNKNOWN INDICATION
  6. FOLIC ACID. [Concomitant]
     Active Substance: FOLIC ACID
     Indication: PRODUCT USED FOR UNKNOWN INDICATION

REACTIONS (17)
  - Drug ineffective [Unknown]
  - Heart valve incompetence [Unknown]
  - Neoplasm malignant [Unknown]
  - Hypersensitivity [Unknown]
  - Neurogenic bladder [Unknown]
  - Blood pressure abnormal [Unknown]
  - Pneumonia [Unknown]
  - Musculoskeletal stiffness [Unknown]
  - Cataract [Recovered/Resolved]
  - Rheumatoid arthritis [Unknown]
  - Depression [Unknown]
  - Aortic valve incompetence [Unknown]
  - Gastritis erosive [Unknown]
  - Urinary tract infection [Unknown]
  - Injection site pain [Unknown]
  - Nervous system disorder [Unknown]
  - Insomnia [Unknown]

NARRATIVE: CASE EVENT DATE: 2017
